FAERS Safety Report 8624184-4 (Version None)
Quarter: 2012Q3

REPORT INFORMATION
  Report Type: 
  Country: None (occurrence: None)
  Receive Date: 20120827
  Receipt Date: 20120510
  Transmission Date: 20120928
  Serious: No
  Sender: FDA-Public Use
  Company Number: US-VERTEX PHARMACEUTICALS INC.-AE-2012-006788

PATIENT
  Sex: Male

DRUGS (7)
  1. TOBRAMYCIN [Concomitant]
  2. ALBUTEROL [Concomitant]
  3. ZANTAC [Concomitant]
  4. ENZYMES [Concomitant]
  5. KALYDECO [Suspect]
     Indication: CYSTIC FIBROSIS
     Dates: start: 20120509
  6. PULMOZYME [Concomitant]
  7. ZITHROMAX [Concomitant]

REACTIONS (1)
  - MUSCLE TWITCHING [None]
